FAERS Safety Report 16536959 (Version 3)
Quarter: 2019Q3

REPORT INFORMATION
  Report Type: Spontaneous
  Country: FR (occurrence: FR)
  Receive Date: 20190707
  Receipt Date: 20190813
  Transmission Date: 20191004
  Serious: Yes (Death, Life-Threatening, Hospitalization, Other)
  Sender: FDA-Public Use
  Company Number: PHHY2019FR153966

PATIENT
  Age: 25 Year
  Sex: Male

DRUGS (1)
  1. IBUPROFEN. [Suspect]
     Active Substance: IBUPROFEN
     Indication: PHARYNGITIS
     Dosage: UNK
     Route: 048

REACTIONS (23)
  - Depressed level of consciousness [Unknown]
  - Multiple organ dysfunction syndrome [Unknown]
  - Haemorrhage intracranial [Unknown]
  - Muscle necrosis [Fatal]
  - Mydriasis [Unknown]
  - Clostridial infection [Fatal]
  - Hypotension [Fatal]
  - Product use in unapproved indication [Unknown]
  - Granulocytosis [Fatal]
  - Agranulocytosis [Unknown]
  - Musculoskeletal pain [Fatal]
  - Paralysis [Fatal]
  - Septic shock [Fatal]
  - Toxic shock syndrome [Fatal]
  - Acute kidney injury [Unknown]
  - Clostridial sepsis [Fatal]
  - Leukopenia [Fatal]
  - Swelling [Fatal]
  - Tachycardia [Fatal]
  - Rhabdomyolysis [Fatal]
  - Pain in extremity [Fatal]
  - Shock haemorrhagic [Unknown]
  - Pyrexia [Fatal]
